FAERS Safety Report 21430205 (Version 1)
Quarter: 2022Q4

REPORT INFORMATION
  Report Type: Spontaneous
  Country: DE (occurrence: DE)
  Receive Date: 20221009
  Receipt Date: 20221009
  Transmission Date: 20230113
  Serious: Yes (Hospitalization)
  Sender: FDA-Public Use
  Company Number: DE-ADRED-08484-01

PATIENT
  Age: 63 Year
  Sex: Female

DRUGS (11)
  1. PREDNISOLONE [Suspect]
     Active Substance: PREDNISOLONE
     Indication: Product used for unknown indication
     Dosage: 5 MILLIGRAM DAILY; 5 MG, 1-0-0-0
  2. DILTIAZEM [Concomitant]
     Active Substance: DILTIAZEM
     Indication: Product used for unknown indication
     Dosage: 3 DOSAGE FORMS DAILY; 60 MG, 1-1-1-0
  3. LEVOTHYROXINE SODIUM [Concomitant]
     Active Substance: LEVOTHYROXINE SODIUM
     Indication: Product used for unknown indication
     Dosage: 100 MICROGRAM DAILY; 100 UG, 1-0-0-0
  4. PANTOPRAZOLE SODIUM [Concomitant]
     Active Substance: PANTOPRAZOLE SODIUM
     Indication: Product used for unknown indication
     Dosage: 40 MILLIGRAM DAILY; 40 MG, 1-0-0-0
  5. TORSEMIDE [Concomitant]
     Active Substance: TORSEMIDE
     Indication: Product used for unknown indication
     Dosage: 100 MG, SCHEME
  6. Calcitriol (Vitamin D) [Concomitant]
     Indication: Product used for unknown indication
     Dosage: .5 MICROGRAM DAILY; 0.5 UG, 1-0-0-0
  7. METAMIZOL [Concomitant]
     Active Substance: METAMIZOLE SODIUM
     Indication: Product used for unknown indication
     Dosage: 500 MG, REQUIREMENT
  8. RAMIPRIL [Concomitant]
     Active Substance: RAMIPRIL
     Indication: Product used for unknown indication
     Dosage: 2.5 MG, 1-0-0-0
  9. SEVELAMER [Concomitant]
     Active Substance: SEVELAMER
     Indication: Product used for unknown indication
     Dosage: 3 DOSAGE FORMS DAILY; 800 MG, 1-1-1-0
  10. TINZAPARIN [Concomitant]
     Active Substance: TINZAPARIN
     Indication: Product used for unknown indication
     Dosage: 0.3 ML, SCHEME
  11. DARBEPOETIN ALFA [Concomitant]
     Active Substance: DARBEPOETIN ALFA
     Indication: Product used for unknown indication
     Dosage: 60 UG, SCHEME

REACTIONS (11)
  - Weight decreased [Unknown]
  - Dyspnoea [Unknown]
  - Condition aggravated [Unknown]
  - Abdominal pain lower [Unknown]
  - Anaemia [Unknown]
  - Fatigue [Unknown]
  - Abdominal pain [Unknown]
  - Renal impairment [Unknown]
  - General physical health deterioration [Unknown]
  - Systemic infection [Unknown]
  - Urinary tract infection [Unknown]
